FAERS Safety Report 25461016 (Version 1)
Quarter: 2025Q2

REPORT INFORMATION
  Report Type: Report from Study
  Country: US (occurrence: US)
  Receive Date: 20250620
  Receipt Date: 20250620
  Transmission Date: 20250716
  Serious: Yes (Other)
  Sender: MALLINCKRODT
  Company Number: US-MALLINCKRODT-MNK202503536

PATIENT
  Age: 58 Year
  Sex: Female

DRUGS (3)
  1. CORTICOTROPIN [Suspect]
     Active Substance: CORTICOTROPIN
     Indication: Systemic lupus erythematosus
     Route: 058
     Dates: start: 202311
  2. XANAX [Concomitant]
     Active Substance: ALPRAZOLAM
  3. XANAX [Concomitant]
     Active Substance: ALPRAZOLAM

REACTIONS (3)
  - Eye operation [Unknown]
  - Headache [Unknown]
  - Insomnia [Unknown]

NARRATIVE: CASE EVENT DATE: 20250601
